FAERS Safety Report 12256532 (Version 3)
Quarter: 2016Q4

REPORT INFORMATION
  Report Type: Spontaneous
  Country: IL (occurrence: IL)
  Receive Date: 20160412
  Receipt Date: 20161209
  Transmission Date: 20170207
  Serious: Yes (Other)
  Sender: FDA-Public Use
  Company Number: IL-PFIZER INC-2016198478

PATIENT
  Age: 70 Year
  Sex: Male

DRUGS (1)
  1. ELELYSO [Suspect]
     Active Substance: TALIGLUCERASE ALFA
     Indication: GAUCHER^S DISEASE
     Dosage: 3800 IU, MONTHLY
     Route: 042

REACTIONS (4)
  - Joint effusion [Recovering/Resolving]
  - Squamous cell carcinoma of skin [Unknown]
  - Osteoarthritis [Unknown]
  - Arthralgia [Recovering/Resolving]
